FAERS Safety Report 4413243-8 (Version None)
Quarter: 2004Q3

REPORT INFORMATION
  Report Type: 
  Country: None (occurrence: None)
  Receive Date: 20040728
  Receipt Date: 20040715
  Transmission Date: 20050211
  Serious: Yes (Other)
  Sender: FDA-Public Use
  Company Number: 2004031594

PATIENT
  Sex: Male

DRUGS (1)
  1. TIKOSYN [Suspect]
     Indication: ILL-DEFINED DISORDER

REACTIONS (3)
  - CONDUCTION DISORDER [None]
  - DEPRESSION [None]
  - FATIGUE [None]
